FAERS Safety Report 6163201-0 (Version None)
Quarter: 2009Q2

REPORT INFORMATION
  Report Type: 
  Country: None (occurrence: None)
  Receive Date: 20090422
  Receipt Date: 20090415
  Transmission Date: 20091009
  Serious: Yes (Other)
  Sender: FDA-Public Use
  Company Number: ES-AMGEN-UK340848

PATIENT
  Sex: Male
  Weight: 90 kg

DRUGS (8)
  1. MIMPARA [Suspect]
     Indication: HYPERPARATHYROIDISM SECONDARY
     Route: 048
     Dates: start: 20081020, end: 20090126
  2. PREDNISONE [Concomitant]
     Route: 048
     Dates: start: 20030526
  3. PROGRAF [Concomitant]
     Route: 048
     Dates: start: 20030526
  4. CELLCEPT [Concomitant]
     Dates: start: 20030526
  5. NORVASC [Concomitant]
     Route: 048
     Dates: start: 20030526
  6. ROCALTROL [Concomitant]
     Route: 048
     Dates: start: 20050118
  7. PHOSPHATE-SANDOZ [Concomitant]
     Route: 048
  8. DOXAZOSIN MESYLATE [Concomitant]
     Route: 048
     Dates: start: 20070426

REACTIONS (2)
  - BLOOD TESTOSTERONE DECREASED [None]
  - ERECTILE DYSFUNCTION [None]
